FAERS Safety Report 19513369 (Version 1)
Quarter: 2021Q3

REPORT INFORMATION
  Report Type: Spontaneous
  Country: US (occurrence: US)
  Receive Date: 20210709
  Receipt Date: 20210709
  Transmission Date: 20211014
  Serious: Yes (Hospitalization)
  Sender: FDA-Public Use
  Company Number: US-FRESENIUS KABI-FK202106907

PATIENT
  Age: 71 Year
  Sex: Male
  Weight: 100.2 kg

DRUGS (3)
  1. FLUOROURACIL (MANUFACTURER UNKNOWN) [Suspect]
     Active Substance: FLUOROURACIL
     Indication: GALLBLADDER CANCER METASTATIC
     Dosage: 2400 MG/M2 Q2W?ONGOING
     Route: 042
     Dates: start: 20210518
  2. IRINOTECAN [Suspect]
     Active Substance: IRINOTECAN
     Indication: GALLBLADDER CANCER METASTATIC
     Dosage: 50 MG/M2 Q2W?ONGOING
     Route: 042
     Dates: start: 20210603
  3. CALCIUM FOLINATE [Suspect]
     Active Substance: LEUCOVORIN CALCIUM
     Indication: GALLBLADDER CANCER METASTATIC
     Dosage: 400 MG/M2 Q2W?ONGOING
     Route: 065
     Dates: start: 20210518

REACTIONS (1)
  - Abdominal pain [Recovered/Resolved]

NARRATIVE: CASE EVENT DATE: 20210611
